FAERS Safety Report 7166199-1 (Version None)
Quarter: 2010Q4

REPORT INFORMATION
  Report Type: 
  Country: None (occurrence: None)
  Receive Date: 20101201
  Receipt Date: 20101124
  Transmission Date: 20110411
  Serious: Yes (Hospitalization)
  Sender: FDA-Public Use
  Company Number: DSA_44346_2010

PATIENT
  Sex: Male

DRUGS (9)
  1. XENAZINE [Suspect]
     Indication: HUNTINGTON'S DISEASE
     Dosage: (25 MG BID ORAL)
     Route: 048
     Dates: start: 20081216
  2. XENAZINE [Suspect]
     Indication: MUSCLE SPASMS
     Dosage: (25 MG BID ORAL)
     Route: 048
     Dates: start: 20081216
  3. ATIVAN [Concomitant]
  4. M.V.I. [Concomitant]
  5. CONCERTA [Concomitant]
  6. OMEGA 3 /00931501/ [Concomitant]
  7. COENZYME Q10 [Concomitant]
  8. CELEXA [Concomitant]
  9. TRAZODONE [Concomitant]

REACTIONS (3)
  - DRUG INTERACTION [None]
  - INTENTIONAL SELF-INJURY [None]
  - SUICIDAL IDEATION [None]
